FAERS Safety Report 6663275-4 (Version None)
Quarter: 2010Q2

REPORT INFORMATION
  Report Type: 
  Country: None (occurrence: None)
  Receive Date: 20100401
  Receipt Date: 20100111
  Transmission Date: 20101027
  Serious: Yes (Life-Threatening, Disabling)
  Sender: FDA-Public Use
  Company Number: GB-TEVA-228515ISR

PATIENT
  Sex: Male

DRUGS (15)
  1. PREDNISOLONE [Suspect]
     Indication: PROSTATE CANCER
     Route: 048
     Dates: start: 20080930, end: 20081127
  2. ABIRATERONE ACETATE OR PLACEBO [Suspect]
     Indication: PROSTATE CANCER
     Route: 048
     Dates: start: 20080930, end: 20081125
  3. MORPHINE SULFATE [Concomitant]
     Indication: CANCER PAIN
     Route: 048
     Dates: start: 20081110
  4. MORPHINE SULFATE [Concomitant]
     Route: 048
     Dates: start: 20080930
  5. PAMIDRONATE DISODIUM [Concomitant]
     Indication: CANCER PAIN
     Route: 042
     Dates: start: 20080926
  6. PRAVASTATIN [Concomitant]
     Indication: BLOOD CHOLESTEROL
     Route: 048
     Dates: start: 20080922
  7. SILDENAFIL CITRATE [Concomitant]
     Route: 048
     Dates: start: 20080922
  8. LEVOTHYROXINE SODIUM [Concomitant]
     Indication: HYPOTHYROIDISM
     Route: 048
     Dates: start: 20080922
  9. CELECOXIB [Concomitant]
     Indication: CANCER PAIN
     Route: 048
     Dates: start: 20080922
  10. PARACETAMOL [Concomitant]
     Indication: CANCER PAIN
     Route: 048
     Dates: start: 20080922
  11. OMEPRAZOLE [Concomitant]
     Indication: DYSPEPSIA
     Route: 048
     Dates: start: 20080922
  12. NAPROXEN [Concomitant]
     Indication: CANCER PAIN
     Route: 048
     Dates: start: 20081116
  13. GOSERELIN [Concomitant]
     Dates: start: 20080930
  14. PREDNISOLONE [Concomitant]
     Indication: CANCER PAIN
     Route: 048
     Dates: start: 20080922, end: 20081127
  15. PREDNISOLONE [Concomitant]
     Indication: HYPOTHYROIDISM
     Route: 048
     Dates: start: 20081128

REACTIONS (1)
  - DYSPNOEA EXERTIONAL [None]
